FAERS Safety Report 15322728 (Version 1)
Quarter: 2018Q3

REPORT INFORMATION
  Report Type: Spontaneous
  Country: US (occurrence: US)
  Receive Date: 20180827
  Receipt Date: 20180827
  Transmission Date: 20181010
  Serious: Yes (Other)
  Sender: FDA-Public Use
  Company Number: US-JNJFOC-20180825449

PATIENT
  Sex: Female
  Weight: 75 kg

DRUGS (11)
  1. MERCAPTOPURINE. [Concomitant]
     Active Substance: MERCAPTOPURINE
     Route: 065
  2. ENPRESSE [Concomitant]
     Active Substance: ETHINYL ESTRADIOL\LEVONORGESTREL
     Route: 065
  3. HYDROCORTISONE. [Concomitant]
     Active Substance: HYDROCORTISONE
     Route: 065
  4. REMICADE [Suspect]
     Active Substance: INFLIXIMAB
     Indication: CROHN^S DISEASE
     Route: 042
     Dates: start: 201803
  5. ALBUTEROL. [Concomitant]
     Active Substance: ALBUTEROL
     Route: 045
  6. FLONASE [Concomitant]
     Active Substance: FLUTICASONE PROPIONATE
     Route: 065
  7. OXYMETAZOLINE [Concomitant]
     Active Substance: OXYMETAZOLINE
     Route: 061
  8. ALLEGRA [Concomitant]
     Active Substance: FEXOFENADINE HYDROCHLORIDE
     Route: 065
  9. SINGULAIR [Concomitant]
     Active Substance: MONTELUKAST SODIUM
     Route: 065
  10. ASMANEX [Concomitant]
     Active Substance: MOMETASONE FUROATE
     Route: 065
  11. TRAMADOL. [Concomitant]
     Active Substance: TRAMADOL
     Route: 065

REACTIONS (1)
  - Wolff-Parkinson-White syndrome [Not Recovered/Not Resolved]
